FAERS Safety Report 25889556 (Version 1)
Quarter: 2025Q4

REPORT INFORMATION
  Report Type: Report from Study
  Country: MY (occurrence: MY)
  Receive Date: 20251007
  Receipt Date: 20251007
  Transmission Date: 20260117
  Serious: Yes (Death, Hospitalization)
  Sender: DR REDDYS
  Company Number: MY-MYS-MYS/2025/10/015197

PATIENT
  Age: 62 Year
  Sex: Female

DRUGS (1)
  1. SEVELAMER CARBONATE [Suspect]
     Active Substance: SEVELAMER CARBONATE
     Indication: Hyperphosphataemia
     Route: 048

REACTIONS (2)
  - Cardiac disorder [Fatal]
  - Renal disorder [Fatal]
